FAERS Safety Report 22244455 (Version 1)
Quarter: 2023Q2

REPORT INFORMATION
  Report Type: Spontaneous
  Country: US (occurrence: None)
  Receive Date: 20230422
  Receipt Date: 20230422
  Transmission Date: 20230721
  Serious: Yes (Other)
  Sender: FDA-Public Use
  Company Number: None

PATIENT
  Age: 63 Year
  Sex: Female
  Weight: 47.25 kg

DRUGS (15)
  1. RECLAST [Suspect]
     Active Substance: ZOLEDRONIC ACID
     Indication: Osteoporosis
     Dates: start: 20230420, end: 20230420
  2. METOPROLOL [Concomitant]
     Active Substance: METOPROLOL
  3. PANTOPRAZOLE [Concomitant]
     Active Substance: PANTOPRAZOLE
  4. FAMOTIDINE [Concomitant]
     Active Substance: FAMOTIDINE
  5. low dose naltrexone (LDN) [Concomitant]
  6. FLOVENT HFA [Concomitant]
     Active Substance: FLUTICASONE PROPIONATE
  7. ALBUTEROL [Concomitant]
     Active Substance: ALBUTEROL
  8. ASCORBIC ACID [Concomitant]
     Active Substance: ASCORBIC ACID
  9. VITAMINS D3 [Concomitant]
  10. VITAMINS [Concomitant]
     Active Substance: VITAMINS
  11. CALCIUM CITRATE [Concomitant]
     Active Substance: CALCIUM CITRATE
  12. ZINC [Concomitant]
     Active Substance: ZINC
  13. FISH OIL [Concomitant]
     Active Substance: FISH OIL
  14. PROBIOTICS NOS [Concomitant]
     Active Substance: PROBIOTICS NOS
  15. ACIDOPHILUS [Concomitant]
     Active Substance: LACTOBACILLUS ACIDOPHILUS

REACTIONS (9)
  - Infusion related reaction [None]
  - Paraesthesia [None]
  - Paraesthesia oral [None]
  - Musculoskeletal stiffness [None]
  - Joint stiffness [None]
  - Musculoskeletal stiffness [None]
  - Dyskinesia [None]
  - Headache [None]
  - Back pain [None]

NARRATIVE: CASE EVENT DATE: 20230420
